FAERS Safety Report 5650314-2 (Version None)
Quarter: 2008Q1

REPORT INFORMATION
  Report Type: 
  Country: None (occurrence: None)
  Receive Date: 20080304
  Receipt Date: 20080304
  Transmission Date: 20080703
  Serious: Yes (Hospitalization, Disabling)
  Sender: FDA-Public Use
  Company Number: None

PATIENT
  Age: 64 Year
  Sex: Male
  Weight: 70.1261 kg

DRUGS (2)
  1. TIGECYCLINE   50 MG   WYETH PHARMACEUTICALS [Suspect]
     Indication: INFECTION
     Dosage: 100 MG  ONCE  IV
     Route: 042
     Dates: start: 20080118, end: 20080118
  2. TIGECYCLINE  50 MG  WYETH PHARMACEUTICALS [Suspect]
     Indication: INFECTION
     Dosage: 50 MG EVERY 12 HOURS IV
     Route: 042
     Dates: start: 20080119, end: 20080202

REACTIONS (1)
  - INTERNATIONAL NORMALISED RATIO FLUCTUATION [None]
